FAERS Safety Report 5367023-X (Version None)
Quarter: 2007Q2

REPORT INFORMATION
  Report Type: 
  Country: None (occurrence: None)
  Receive Date: 20070619
  Receipt Date: 20070619
  Transmission Date: 20071010
  Serious: Yes (Hospitalization)
  Sender: FDA-Public Use
  Company Number: None

PATIENT
  Age: 78 Year
  Sex: Female
  Weight: 78.4723 kg

DRUGS (10)
  1. REVLIMID [Suspect]
     Indication: OVARIAN CANCER METASTATIC
     Dosage: 5MG QD PO
     Route: 048
     Dates: start: 20070125, end: 20070219
  2. REVLIMID [Suspect]
     Indication: OVARIAN CANCER RECURRENT
     Dosage: 5MG QD PO
     Route: 048
     Dates: start: 20070125, end: 20070219
  3. REVLIMID [Suspect]
     Indication: OVARIAN CANCER METASTATIC
     Dosage: 5MG QD PO
     Route: 048
     Dates: start: 20070228, end: 20070322
  4. REVLIMID [Suspect]
     Indication: OVARIAN CANCER RECURRENT
     Dosage: 5MG QD PO
     Route: 048
     Dates: start: 20070228, end: 20070322
  5. REVLIMID [Suspect]
     Indication: OVARIAN CANCER METASTATIC
     Dosage: 5MG QD PO
     Route: 048
     Dates: start: 20070329, end: 20070420
  6. REVLIMID [Suspect]
     Indication: OVARIAN CANCER RECURRENT
     Dosage: 5MG QD PO
     Route: 048
     Dates: start: 20070329, end: 20070420
  7. PEPCID [Concomitant]
  8. HYDROCHLOROTHIAZIDE [Concomitant]
  9. K-DUR 10 [Concomitant]
  10. ASPIRIN [Concomitant]

REACTIONS (1)
  - SMALL INTESTINAL OBSTRUCTION [None]
